FAERS Safety Report 8954048 (Version 1)
Quarter: 2012Q4

REPORT INFORMATION
  Report Type: 
  Country: US (occurrence: US)
  Receive Date: 20121207
  Receipt Date: 20121207
  Transmission Date: 20130627
  Serious: No
  Sender: FDA-Public Use
  Company Number: US-BAYER-2012-128540

PATIENT
  Age: 73 Year
  Sex: Male
  Weight: 95 kg

DRUGS (3)
  1. ALEVE CAPLET/TABLET,MIDOL EXTENDED RELIEF CAPLET [Suspect]
     Indication: BACK ACHE
     Dosage: 2 DF, QD
     Dates: start: 20121107
  2. METFORMIN [Concomitant]
  3. GLYBURIDE [Concomitant]

REACTIONS (2)
  - Incorrect drug administration duration [None]
  - Expired drug administered [None]
